FAERS Safety Report 5225791-1 (Version None)
Quarter: 2007Q1

REPORT INFORMATION
  Report Type: 
  Country: None (occurrence: None)
  Receive Date: 20070130
  Receipt Date: 20070130
  Transmission Date: 20070707
  Serious: Yes (Other)
  Sender: FDA-Public Use
  Company Number: None

PATIENT
  Age: 47 Year
  Sex: Female
  Weight: 74.8435 kg

DRUGS (2)
  1. SERTRALINE HCL [Suspect]
     Indication: ANXIETY
     Dosage: 100 MG DAILY MY MOUTH
     Dates: start: 20070105, end: 20070124
  2. SERTRALINE HCL [Suspect]
     Indication: DEPRESSION
     Dosage: 100 MG DAILY MY MOUTH
     Dates: start: 20070105, end: 20070124

REACTIONS (13)
  - AFFECTIVE DISORDER [None]
  - ANGER [None]
  - BRUXISM [None]
  - DISTURBANCE IN ATTENTION [None]
  - ILL-DEFINED DISORDER [None]
  - INSOMNIA [None]
  - NERVOUSNESS [None]
  - PANIC REACTION [None]
  - PHARMACEUTICAL PRODUCT COMPLAINT [None]
  - PRESSURE OF SPEECH [None]
  - PSYCHOMOTOR HYPERACTIVITY [None]
  - TEARFULNESS [None]
  - TREMOR [None]
